FAERS Safety Report 7699056-2 (Version None)
Quarter: 2011Q3

REPORT INFORMATION
  Report Type: 
  Country: None (occurrence: None)
  Receive Date: 20110818
  Receipt Date: 20110818
  Transmission Date: 20111222
  Serious: No
  Sender: FDA-Public Use
  Company Number: None

PATIENT
  Age: 38 Year
  Sex: Male

DRUGS (2)
  1. MINOCYCLINE HCL [Suspect]
     Dates: end: 20080407
  2. ^QINGYIN WAN^ (INGREDIENTS UNKNOWN) [Concomitant]

REACTIONS (7)
  - LIVER DISORDER [None]
  - FATIGUE [None]
  - ASPARTATE AMINOTRANSFERASE INCREASED [None]
  - PYREXIA [None]
  - ALANINE AMINOTRANSFERASE INCREASED [None]
  - MYALGIA [None]
  - INFECTIOUS MONONUCLEOSIS [None]
